FAERS Safety Report 6909086-3 (Version None)
Quarter: 2010Q3

REPORT INFORMATION
  Report Type: 
  Country: None (occurrence: None)
  Receive Date: 20100805
  Receipt Date: 20100727
  Transmission Date: 20110219
  Serious: Yes (Death)
  Sender: FDA-Public Use
  Company Number: BE-AMGEN-QUU428002

PATIENT
  Age: 65 Year
  Sex: Male
  Weight: 98.8 kg

DRUGS (9)
  1. ENBREL [Suspect]
     Indication: POLYARTHRITIS
     Route: 058
     Dates: start: 20071201, end: 20090701
  2. KREDEX [Concomitant]
  3. MOXONIDINE [Concomitant]
  4. GEMZAR [Concomitant]
     Indication: NEOPLASM MALIGNANT
  5. ADALAT [Concomitant]
  6. LEVOTHYROXINE [Concomitant]
     Indication: THYROIDECTOMY
     Dosage: 75 TO 200 MCG/DAY
     Dates: start: 20090301
  7. PLATINOL [Concomitant]
     Indication: NEOPLASM MALIGNANT
  8. ALLOPURINOL [Concomitant]
     Indication: HYPERURICAEMIA
     Route: 048
     Dates: start: 20080401
  9. COAPROVEL [Concomitant]

REACTIONS (2)
  - METASTASIS [None]
  - TRANSITIONAL CELL CARCINOMA [None]
